FAERS Safety Report 4517686-3 (Version None)
Quarter: 2004Q4

REPORT INFORMATION
  Report Type: 
  Country: None (occurrence: None)
  Receive Date: 20041202
  Receipt Date: 20041202
  Transmission Date: 20050328
  Serious: Yes (Hospitalization)
  Sender: FDA-Public Use
  Company Number: None

PATIENT
  Sex: Female
  Weight: 54.8852 kg

DRUGS (4)
  1. GEMZAR [Suspect]
     Indication: PANCREATIC CARCINOMA
     Dosage: 650 MG/M2 IV
     Route: 042
     Dates: start: 20040721
  2. GEMZAR [Suspect]
     Indication: PANCREATIC CARCINOMA
     Dosage: 650 MG/M2 IV
     Route: 042
     Dates: start: 20040728
  3. GEMZAR [Suspect]
     Indication: PANCREATIC CARCINOMA
     Dosage: 650 MG/M2 IV
     Route: 042
     Dates: start: 20040804
  4. CELEBREX [Suspect]
     Indication: PANCREATIC CARCINOMA
     Dosage: 400 MG BID PO
     Route: 048
     Dates: start: 20040721

REACTIONS (2)
  - ASCITES [None]
  - CONSTIPATION [None]
